FAERS Safety Report 14681513 (Version 1)
Quarter: 2018Q1

REPORT INFORMATION
  Report Type: Spontaneous
  Country: LB (occurrence: LB)
  Receive Date: 20180326
  Receipt Date: 20180326
  Transmission Date: 20180509
  Serious: Yes (Death, Other)
  Sender: FDA-Public Use
  Company Number: LB-B.I. PHARMACEUTICALS,INC./RIDGEFIELD-2018-BI-016642

PATIENT
  Sex: Male

DRUGS (2)
  1. GILOTRIF [Suspect]
     Active Substance: AFATINIB
     Indication: NON-SMALL CELL LUNG CANCER
     Route: 048
     Dates: end: 201803
  2. GILOTRIF [Suspect]
     Active Substance: AFATINIB
     Indication: EGFR GENE MUTATION
     Route: 048
     Dates: start: 201801

REACTIONS (1)
  - Pneumonitis [Fatal]

NARRATIVE: CASE EVENT DATE: 20180312
